FAERS Safety Report 5338481-1 (Version None)
Quarter: 2007Q2

REPORT INFORMATION
  Report Type: 
  Country: None (occurrence: None)
  Receive Date: 20070405
  Receipt Date: 20061109
  Transmission Date: 20071010
  Serious: No
  Sender: FDA-Public Use
  Company Number: US200611001898

PATIENT
  Sex: Female

DRUGS (7)
  1. CYMBALTA [Suspect]
     Indication: DEPRESSION
     Dosage: 90 MG, ORAL
     Route: 048
     Dates: start: 20060810
  2. LAMICTAL [Concomitant]
  3. SEROQUEL [Concomitant]
  4. QUETIAPINE FUMARATE [Concomitant]
  5. ADDERALL (AMFETAMINE ASPARTATE, AMFETAMINE SULFATE, DEXAFETAMINE SACCH [Concomitant]
  6. MULTIVITAMINS (ASCORBIC ACID, ERGOCALCIFEROL, FOLIC ACID, NICOTINAMIDE [Concomitant]
  7. CALCIUM (CALCIUM) [Concomitant]

REACTIONS (5)
  - INCREASED APPETITE [None]
  - ORAL LICHEN PLANUS [None]
  - STOMATITIS [None]
  - TONGUE ULCERATION [None]
  - WEIGHT DECREASED [None]
